FAERS Safety Report 22589246 (Version 10)
Quarter: 2023Q4

REPORT INFORMATION
  Report Type: Report from Study
  Country: MX (occurrence: MX)
  Receive Date: 20230612
  Receipt Date: 20231002
  Transmission Date: 20240109
  Serious: Yes (Life-Threatening, Hospitalization)
  Sender: FDA-Public Use
  Company Number: MX-AMGEN-MEXCT2023100847

PATIENT
  Age: 9 Year
  Sex: Male

DRUGS (17)
  1. CARFILZOMIB [Suspect]
     Active Substance: CARFILZOMIB
     Indication: Acute lymphocytic leukaemia
     Dosage: 56 MILLIGRAM
     Route: 042
     Dates: start: 20230605, end: 20230606
  2. VINCRISTINE [Suspect]
     Active Substance: VINCRISTINE
     Indication: Acute lymphocytic leukaemia
     Dosage: 1.5 MILLIGRAM
     Route: 065
     Dates: start: 20230605
  3. DAUNORUBICIN [Suspect]
     Active Substance: DAUNORUBICIN
     Indication: Acute lymphocytic leukaemia
     Dosage: 60 MILLIGRAM
     Route: 065
     Dates: start: 20230606
  4. DEXAMETHASONE [Suspect]
     Active Substance: DEXAMETHASONE
     Indication: Acute lymphocytic leukaemia
     Dosage: 3 MILLIGRAM
     Route: 065
     Dates: start: 20230605
  5. PEG/L-ASPARAGINASE [Suspect]
     Active Substance: PEGASPARGASE
     Indication: Acute lymphocytic leukaemia
     Dosage: 2500 UNK
     Route: 065
     Dates: start: 20230608
  6. CIPROFLOXACIN [Concomitant]
     Active Substance: CIPROFLOXACIN
     Dosage: 250 MILLIGRAM
     Route: 048
     Dates: start: 202212, end: 20230608
  7. VALGANCICLOVIR [Concomitant]
     Active Substance: VALGANCICLOVIR
     Dosage: 450 MILLIGRAM
     Route: 048
     Dates: start: 202302
  8. CEFIXIME [Concomitant]
     Active Substance: CEFIXIME
     Dosage: 220 MILLIGRAM
     Route: 048
     Dates: start: 20230609, end: 20230611
  9. ACETAMINOPHEN\NAPROXEN [Concomitant]
     Active Substance: ACETAMINOPHEN\NAPROXEN
     Dosage: 6 MILLILITER
     Route: 048
     Dates: start: 20230527, end: 20230529
  10. ALLOPURINOL [Concomitant]
     Active Substance: ALLOPURINOL
     Dosage: 150 MILLIGRAM
     Route: 048
     Dates: start: 20230606, end: 20230608
  11. Difenhidramina [Concomitant]
     Dosage: 30 MILLIGRAM
     Route: 042
     Dates: start: 20230608, end: 20230623
  12. DEXRAZOXANE [Concomitant]
     Active Substance: DEXRAZOXANE
     Dosage: 500 MILLIGRAM
     Route: 042
     Dates: start: 20230606, end: 20230606
  13. ONDANSETRON [Concomitant]
     Active Substance: ONDANSETRON
     Dosage: 5 MILLIGRAM
     Route: 042
     Dates: start: 20230605
  14. CYTARABINE [Concomitant]
     Active Substance: CYTARABINE
     Dosage: 30 MILLIGRAM
     Route: 029
     Dates: start: 20230530, end: 20230530
  15. HYDROCORTISONE [Concomitant]
     Active Substance: HYDROCORTISONE
     Dosage: 15 MILLIGRAM
     Route: 029
     Dates: start: 20230530, end: 20230530
  16. METHOTREXATE [Concomitant]
     Active Substance: METHOTREXATE
     Dosage: 15 MILLIGRAM
     Route: 029
     Dates: start: 20230530, end: 20230530
  17. PROPRANOLOL HYDROCHLORIDE [Concomitant]
     Active Substance: PROPRANOLOL HYDROCHLORIDE
     Dosage: 10 MILLIGRAM
     Route: 048
     Dates: start: 20230605

REACTIONS (1)
  - Septic shock [Recovered/Resolved]

NARRATIVE: CASE EVENT DATE: 20230610
